FAERS Safety Report 8325324-7 (Version None)
Quarter: 2012Q2

REPORT INFORMATION
  Report Type: 
  Country: None (occurrence: None)
  Receive Date: 20120501
  Receipt Date: 20120416
  Transmission Date: 20120825
  Serious: Yes (Other)
  Sender: FDA-Public Use
  Company Number: US-ROCHE-1064219

PATIENT

DRUGS (2)
  1. COPEGUS [Suspect]
     Indication: HEPATITIS C
  2. PEGASYS [Suspect]
     Indication: HEPATITIS C

REACTIONS (9)
  - PNEUMONIA [None]
  - FATIGUE [None]
  - DIARRHOEA [None]
  - RENAL IMPAIRMENT [None]
  - BONE MARROW FAILURE [None]
  - LEUKOPENIA [None]
  - ANAEMIA [None]
  - LIVER TRANSPLANT REJECTION [None]
  - FAILURE TO THRIVE [None]
